FAERS Safety Report 12595958 (Version 1)
Quarter: 2016Q3

REPORT INFORMATION
  Report Type: Spontaneous
  Country: IT (occurrence: IT)
  Receive Date: 20160726
  Receipt Date: 20160726
  Transmission Date: 20161109
  Serious: Yes (Hospitalization)
  Sender: FDA-Public Use
  Company Number: PHHY2016IT101291

PATIENT
  Age: 36 Year
  Sex: Female

DRUGS (9)
  1. GLIVEC [Suspect]
     Active Substance: IMATINIB MESYLATE
     Indication: ACUTE MYELOID LEUKAEMIA
     Dosage: 600 MG, QD
     Route: 048
     Dates: start: 20160602
  2. NOXAFIL [Suspect]
     Active Substance: POSACONAZOLE
     Indication: ANTI-INFECTIVE THERAPY
     Dosage: 300 MG, QD
     Route: 048
     Dates: start: 20160607, end: 20160616
  3. GLAZIDIM [Concomitant]
     Active Substance: CEFTAZIDIME
     Indication: PYREXIA
     Dosage: 6 G, UNK
     Route: 065
     Dates: start: 20160612, end: 20160622
  4. ALDACTONE [Concomitant]
     Active Substance: SPIRONOLACTONE
     Indication: FLUID RETENTION
     Dosage: UNK
     Route: 065
     Dates: start: 20160614, end: 20160617
  5. CLARITIN [Suspect]
     Active Substance: LORATADINE
     Indication: DRUG ERUPTION
     Dosage: 20 MG, QD
     Route: 048
     Dates: start: 20160609, end: 20160615
  6. AMIKACINA [Concomitant]
     Active Substance: AMIKACIN SULFATE
     Indication: PYREXIA
     Dosage: 500 MG, UNK
     Route: 042
     Dates: start: 20160613, end: 20160619
  7. UGUROL [Concomitant]
     Active Substance: TRANEXAMIC ACID
     Indication: TRAUMATIC HAEMORRHAGE
     Dosage: UNK
     Route: 065
     Dates: start: 20160606, end: 20160613
  8. ACYCLOVIR. [Concomitant]
     Active Substance: ACYCLOVIR
     Indication: PYREXIA
     Dosage: 400 MG, UNK
     Route: 065
     Dates: start: 20160601
  9. OMEPRAZOLE. [Concomitant]
     Active Substance: OMEPRAZOLE
     Indication: PRODUCT USED FOR UNKNOWN INDICATION
     Dosage: UNK
     Route: 065

REACTIONS (1)
  - Electrocardiogram QT prolonged [Recovered/Resolved]

NARRATIVE: CASE EVENT DATE: 20160615
